FAERS Safety Report 9051218 (Version 1)
Quarter: 2013Q1

REPORT INFORMATION
  Report Type: Spontaneous
  Country: US (occurrence: US)
  Receive Date: 20130206
  Receipt Date: 20130206
  Transmission Date: 20140127
  Serious: Yes (Other)
  Sender: FDA-Public Use
  Company Number: US-009507513-1302USA000909

PATIENT
  Sex: Male

DRUGS (1)
  1. INTERFERON ALFA-2B [Suspect]
     Indication: HEPATITIS C
     Dosage: UNK
     Dates: start: 2003

REACTIONS (3)
  - Hepatic cirrhosis [Unknown]
  - Drug ineffective [Unknown]
  - Therapeutic response decreased [Unknown]
